FAERS Safety Report 15657942 (Version 3)
Quarter: 2018Q4

REPORT INFORMATION
  Report Type: Spontaneous
  Country: US (occurrence: US)
  Receive Date: 20181126
  Receipt Date: 20181201
  Transmission Date: 20190205
  Serious: No
  Sender: FDA-Public Use
  Company Number: US-PFIZER INC-2018486688

PATIENT
  Age: 57 Year
  Sex: Female

DRUGS (7)
  1. ZIPRASIDONE HCL [Suspect]
     Active Substance: ZIPRASIDONE HYDROCHLORIDE
     Dosage: UNK
  2. PALIPERIDONE. [Suspect]
     Active Substance: PALIPERIDONE
     Dosage: UNK
  3. PANTOPRAZOLE [Suspect]
     Active Substance: PANTOPRAZOLE
     Dosage: UNK
  4. MORPHINE SULFATE. [Suspect]
     Active Substance: MORPHINE SULFATE
     Dosage: UNK
  5. CITALOPRAM [Suspect]
     Active Substance: CITALOPRAM HYDROBROMIDE
     Dosage: UNK
  6. OLANZAPINE. [Suspect]
     Active Substance: OLANZAPINE
     Dosage: UNK
  7. QUETIAPINE. [Suspect]
     Active Substance: QUETIAPINE
     Dosage: UNK

REACTIONS (1)
  - Drug hypersensitivity [Unknown]
